FAERS Safety Report 18563134 (Version 1)
Quarter: 2020Q4

REPORT INFORMATION
  Report Type: Spontaneous
  Country: IT (occurrence: IT)
  Receive Date: 20201201
  Receipt Date: 20201201
  Transmission Date: 20210114
  Serious: Yes (Other)
  Sender: FDA-Public Use
  Company Number: IT-LUPIN PHARMACEUTICALS INC.-2020-08727

PATIENT
  Age: 56 Year
  Sex: Female

DRUGS (5)
  1. DECITABINE. [Suspect]
     Active Substance: DECITABINE
     Indication: T-CELL TYPE ACUTE LEUKAEMIA
     Dosage: 20 MILLIGRAM/SQ. METER (DOSE: 20MG/M2 FOR 5 DAYS EVERY 28 DAYS)
     Route: 065
  2. VENETOCLAX. [Suspect]
     Active Substance: VENETOCLAX
     Indication: T-CELL TYPE ACUTE LEUKAEMIA
     Dosage: 100 MILLIGRAM, QD (RUMPED UP OVER 6 DAYS)
     Route: 065
  3. POSACONAZOLE [Concomitant]
     Active Substance: POSACONAZOLE
     Indication: ANTIFUNGAL PROPHYLAXIS
     Dosage: UNK
     Route: 065
  4. VENETOCLAX. [Suspect]
     Active Substance: VENETOCLAX
     Dosage: 200 MILLIGRAM, QD (DOSE REDUCED DUE TO NEUTROPENIA)
     Route: 065
  5. VENETOCLAX. [Suspect]
     Active Substance: VENETOCLAX
     Dosage: 400 MILLIGRAM, QD
     Route: 065

REACTIONS (3)
  - Febrile neutropenia [Recovered/Resolved]
  - Neutropenia [Unknown]
  - Off label use [Unknown]
